FAERS Safety Report 9485971 (Version 1)
Quarter: 2013Q3

REPORT INFORMATION
  Report Type: Spontaneous
  Country: CN (occurrence: None)
  Receive Date: 20130820
  Receipt Date: 20130820
  Transmission Date: 20140515
  Serious: Yes (Other)
  Sender: FDA-Public Use
  Company Number: 2006US-01844

PATIENT
  Age: 82 Year
  Sex: Female

DRUGS (2)
  1. METFORMIN [Suspect]
     Indication: DIABETES MELLITUS
  2. FAMOTIDINE [Concomitant]

REACTIONS (7)
  - Vitamin B12 deficiency [None]
  - Amnesia [None]
  - Hypotonia [None]
  - Ataxia [None]
  - Muscular weakness [None]
  - Areflexia [None]
  - Mini mental status examination abnormal [None]
